FAERS Safety Report 8121442-7 (Version None)
Quarter: 2012Q1

REPORT INFORMATION
  Report Type: 
  Country: None (occurrence: None)
  Receive Date: 20120208
  Receipt Date: 20120205
  Transmission Date: 20120608
  Serious: Yes (Other)
  Sender: FDA-Public Use
  Company Number: US-PFIZER INC-2012030932

PATIENT
  Sex: Male
  Weight: 149.66 kg

DRUGS (1)
  1. VIAGRA [Suspect]
     Indication: ERECTILE DYSFUNCTION
     Dosage: 5000 MG, AS NEEDED
     Route: 054
     Dates: start: 20120101

REACTIONS (2)
  - ERECTION INCREASED [None]
  - SEMEN DISCOLOURATION [None]
